FAERS Safety Report 5453974-4 (Version None)
Quarter: 2007Q3

REPORT INFORMATION
  Report Type: 
  Country: None (occurrence: None)
  Receive Date: 20070917
  Receipt Date: 20070417
  Transmission Date: 20080115
  Serious: No
  Sender: FDA-Public Use
  Company Number: US-ASTRAZENECA-2005UW15770

PATIENT
  Age: 67 Year
  Sex: Female

DRUGS (3)
  1. SEROQUEL [Suspect]
     Indication: ANXIETY
     Route: 048
  2. SEROQUEL [Suspect]
     Route: 048
  3. PROTONIX [Concomitant]
     Dates: start: 20070417

REACTIONS (3)
  - CHILLS [None]
  - FATIGUE [None]
  - OEDEMA PERIPHERAL [None]
